FAERS Safety Report 19879016 (Version 3)
Quarter: 2021Q4

REPORT INFORMATION
  Report Type: Report from Study
  Country: US (occurrence: US)
  Receive Date: 20210924
  Receipt Date: 20211214
  Transmission Date: 20220303
  Serious: Yes (Other)
  Sender: FDA-Public Use
  Company Number: US-ABBVIE-21K-163-4075686-00

PATIENT
  Age: 62 Year
  Sex: Female
  Weight: 118.04 kg

DRUGS (29)
  1. HUMIRA [Suspect]
     Active Substance: ADALIMUMAB
     Indication: Colitis ulcerative
     Dosage: CITRATE FREE
     Route: 058
     Dates: start: 20190611
  2. HUMIRA [Suspect]
     Active Substance: ADALIMUMAB
     Dosage: CF
     Route: 058
  3. AD26.COV2.S [Concomitant]
     Active Substance: AD26.COV2.S
     Indication: COVID-19 immunisation
     Dosage: DOSE 1
     Route: 030
     Dates: start: 20210408, end: 20210408
  4. AD26.COV2.S [Concomitant]
     Active Substance: AD26.COV2.S
     Dosage: DOSE 2
     Route: 030
     Dates: start: 20211119, end: 20211119
  5. METFORMIN [Concomitant]
     Active Substance: METFORMIN HYDROCHLORIDE
     Indication: Type 2 diabetes mellitus
     Dates: end: 201101
  6. LISINOPRIL [Concomitant]
     Active Substance: LISINOPRIL
     Indication: Hypertension
     Dates: start: 2019
  7. LISINOPRIL [Concomitant]
     Active Substance: LISINOPRIL
     Indication: Blood cholesterol increased
  8. VITAMIN C [Concomitant]
     Active Substance: ASCORBIC ACID
     Indication: Supplementation therapy
  9. VITAMIN C [Concomitant]
     Active Substance: ASCORBIC ACID
     Indication: Blood cholesterol increased
  10. VITAMIN C [Concomitant]
     Active Substance: ASCORBIC ACID
     Indication: Neuropathy peripheral
  11. VITAMIN C [Concomitant]
     Active Substance: ASCORBIC ACID
     Indication: Supplementation therapy
  12. IRON [Concomitant]
     Active Substance: IRON
     Indication: Supplementation therapy
  13. IRON [Concomitant]
     Active Substance: IRON
     Indication: Blood cholesterol increased
  14. IRON [Concomitant]
     Active Substance: IRON
     Indication: Neuropathy peripheral
  15. IRON [Concomitant]
     Active Substance: IRON
     Indication: Supplementation therapy
  16. CALCIUM [Concomitant]
     Active Substance: CALCIUM
     Indication: Supplementation therapy
  17. CALCIUM [Concomitant]
     Active Substance: CALCIUM
     Indication: Blood cholesterol increased
  18. CALCIUM [Concomitant]
     Active Substance: CALCIUM
     Indication: Neuropathy peripheral
  19. CALCIUM [Concomitant]
     Active Substance: CALCIUM
     Indication: Supplementation therapy
  20. ASPIRIN [Concomitant]
     Active Substance: ASPIRIN
     Indication: Anticoagulant therapy
  21. ASPIRIN [Concomitant]
     Active Substance: ASPIRIN
     Indication: Blood cholesterol increased
  22. ASPIRIN [Concomitant]
     Active Substance: ASPIRIN
     Indication: Neuropathy peripheral
  23. ASPIRIN [Concomitant]
     Active Substance: ASPIRIN
     Indication: Supplementation therapy
  24. ATORVASTATIN [Concomitant]
     Active Substance: ATORVASTATIN
     Indication: Product used for unknown indication
     Dates: start: 2013
  25. LYRICA [Concomitant]
     Active Substance: PREGABALIN
     Indication: Product used for unknown indication
     Dates: start: 2017
  26. VITAMIN D [Concomitant]
     Active Substance: VITAMIN D NOS
     Indication: Product used for unknown indication
  27. VITAMIN B COMPLEX [Concomitant]
     Active Substance: CYANOCOBALAMIN\DEXPANTHENOL\NIACINAMIDE\PYRIDOXINE HYDROCHLORIDE\RIBOFLAVIN 5^-PHOSPHATE SODIUM\THIA
     Indication: Product used for unknown indication
  28. IRON [Concomitant]
     Active Substance: IRON
     Indication: Product used for unknown indication
  29. VITAMINS [Concomitant]
     Active Substance: VITAMINS
     Indication: Product used for unknown indication

REACTIONS (5)
  - Basal cell carcinoma [Recovered/Resolved]
  - Squamous cell carcinoma of skin [Recovered/Resolved]
  - Skin disorder [Recovered/Resolved]
  - Mass [Recovered/Resolved]
  - Post procedural complication [Not Recovered/Not Resolved]

NARRATIVE: CASE EVENT DATE: 20210401
